FAERS Safety Report 8545943-2 (Version None)
Quarter: 2012Q3

REPORT INFORMATION
  Report Type: 
  Country: None (occurrence: None)
  Receive Date: 20120727
  Receipt Date: 20111123
  Transmission Date: 20120928
  Serious: No
  Sender: FDA-Public Use
  Company Number: US-ASTRAZENECA-2011SE71235

PATIENT
  Sex: Female

DRUGS (4)
  1. SEROQUEL [Suspect]
     Indication: BIPOLAR DISORDER
     Route: 048
     Dates: start: 20100101
  2. IBUPROFEN [Concomitant]
  3. AMITRIPTYLINE HCL [Concomitant]
     Indication: CARPAL TUNNEL SYNDROME
  4. KLONOPIN [Concomitant]
     Indication: ANXIETY

REACTIONS (5)
  - DRUG DOSE OMISSION [None]
  - INSOMNIA [None]
  - ADVERSE EVENT [None]
  - IRRITABILITY [None]
  - MALAISE [None]
